FAERS Safety Report 19423077 (Version 2)
Quarter: 2022Q1

REPORT INFORMATION
  Report Type: Report from Study
  Country: EG (occurrence: EG)
  Receive Date: 20210616
  Receipt Date: 20220103
  Transmission Date: 20220423
  Serious: Yes (Other)
  Sender: FDA-Public Use
  Company Number: EG-NOVARTISPH-NVSC2021EG129851

PATIENT
  Sex: Female

DRUGS (8)
  1. GILENYA [Suspect]
     Active Substance: FINGOLIMOD HYDROCHLORIDE
     Indication: Multiple sclerosis
     Dosage: 0.5 MG, QD (ONE CAP DAY AFTER DAY)
     Route: 048
     Dates: start: 201909
  2. SELENIUM [Concomitant]
     Active Substance: SELENIUM
     Indication: Product used for unknown indication
     Dosage: UNK UNK, QD
     Route: 065
  3. OMEGA 3 [Concomitant]
     Active Substance: CAPSAICIN
     Indication: Product used for unknown indication
     Dosage: UNK UNK, QD
     Route: 048
     Dates: start: 2020
  4. FOLIC ACID [Concomitant]
     Active Substance: FOLIC ACID
     Indication: Alopecia
     Dosage: 1 DOSAGE FORM, QD
     Route: 048
  5. DEVAROL [Concomitant]
     Indication: Product used for unknown indication
     Dosage: 1 DOSAGE FORM, QMO
     Route: 065
     Dates: end: 202103
  6. CARNIVITA FORTE [Concomitant]
     Indication: Product used for unknown indication
     Dosage: UNK UNK, QD
     Route: 065
  7. DICLOFENAC POTASSIUM [Concomitant]
     Active Substance: DICLOFENAC POTASSIUM
     Indication: Analgesic therapy
     Dosage: 1 DOSAGE FORM, QD
     Route: 048
  8. LEVOCARNITINE [Concomitant]
     Active Substance: LEVOCARNITINE
     Indication: Product used for unknown indication
     Dosage: UNK UNK, QD
     Route: 065

REACTIONS (19)
  - Immunodeficiency [Unknown]
  - White blood cell count decreased [Recovering/Resolving]
  - Lethargy [Not Recovered/Not Resolved]
  - Memory impairment [Not Recovered/Not Resolved]
  - White blood cell disorder [Not Recovered/Not Resolved]
  - Pain in extremity [Not Recovered/Not Resolved]
  - Red blood cell count decreased [Unknown]
  - Red cell distribution width increased [Unknown]
  - Vitamin D deficiency [Not Recovered/Not Resolved]
  - Pain of skin [Recovering/Resolving]
  - Multiple sclerosis relapse [Recovering/Resolving]
  - Hypoaesthesia [Recovered/Resolved]
  - Abdominal pain upper [Not Recovered/Not Resolved]
  - Colitis [Not Recovered/Not Resolved]
  - Headache [Not Recovered/Not Resolved]
  - Cough [Recovering/Resolving]
  - Oropharyngeal pain [Recovering/Resolving]
  - Nasopharyngitis [Recovering/Resolving]
  - Product prescribing error [Unknown]

NARRATIVE: CASE EVENT DATE: 20190101
